FAERS Safety Report 16486875 (Version 1)
Quarter: 2019Q3

REPORT INFORMATION
  Report Type: Spontaneous
  Country: US (occurrence: US)
  Receive Date: 20190625
  Receipt Date: 20190625
  Transmission Date: 20191004
  Serious: Yes (Death)
  Sender: FDA-Public Use
  Company Number: None

PATIENT
  Age: 66 Year
  Sex: Female

DRUGS (6)
  1. METOPROLOL TARTRATE. [Concomitant]
     Active Substance: METOPROLOL TARTRATE
  2. ATORVASTATIN [Concomitant]
     Active Substance: ATORVASTATIN
  3. PLAVIX [Concomitant]
     Active Substance: CLOPIDOGREL BISULFATE
  4. PROTONIX [Concomitant]
     Active Substance: PANTOPRAZOLE SODIUM
  5. SANDOSTATIN [Concomitant]
     Active Substance: OCTREOTIDE ACETATE
  6. AFINITOR [Suspect]
     Active Substance: EVEROLIMUS
     Indication: CARCINOID TUMOUR
     Route: 048
     Dates: start: 20190129, end: 20190617

REACTIONS (1)
  - Death [None]

NARRATIVE: CASE EVENT DATE: 20190617
